FAERS Safety Report 11575381 (Version 5)
Quarter: 2018Q3

REPORT INFORMATION
  Report Type: Report from Study
  Country: JP (occurrence: JP)
  Receive Date: 20150930
  Receipt Date: 20180813
  Transmission Date: 20181010
  Serious: Yes (Death)
  Sender: FDA-Public Use
  Company Number: JP-ROCHE-1640587

PATIENT

DRUGS (8)
  1. FOLIC ACID. [Concomitant]
     Active Substance: FOLIC ACID
     Indication: PREMEDICATION
     Route: 048
  2. FOLIC ACID. [Concomitant]
     Active Substance: FOLIC ACID
     Indication: PREMEDICATION
     Route: 065
  3. CARBOPLATIN. [Suspect]
     Active Substance: CARBOPLATIN
     Indication: NON-SMALL CELL LUNG CANCER
     Route: 065
  4. BEVACIZUMAB. [Suspect]
     Active Substance: BEVACIZUMAB
     Indication: NON-SMALL CELL LUNG CANCER
     Dosage: WERE ADMINISTERED ON DAY 1 EVERY 3 WEEKS FOR 4?6 CYCLES AND MAINTENANCE THERAPY WITH BEV (15MG/KG) O
     Route: 041
  5. ERLOTINIB [Suspect]
     Active Substance: ERLOTINIB
     Indication: NON-SMALL CELL LUNG CANCER
     Route: 065
  6. PEMETREXED. [Suspect]
     Active Substance: PEMETREXED
     Indication: NON-SMALL CELL LUNG CANCER
     Route: 065
  7. VITAMIN B12 [Concomitant]
     Active Substance: CYANOCOBALAMIN
     Indication: PREMEDICATION
     Route: 065
  8. VITAMIN B12 [Concomitant]
     Active Substance: CYANOCOBALAMIN
     Indication: PREMEDICATION
     Route: 065

REACTIONS (1)
  - Ventricular fibrillation [Fatal]
